FAERS Safety Report 4531111-8 (Version None)
Quarter: 2004Q4

REPORT INFORMATION
  Report Type: 
  Country: None (occurrence: None)
  Receive Date: 20041215
  Receipt Date: 20041028
  Transmission Date: 20050328
  Serious: No
  Sender: FDA-Public Use
  Company Number: Z002-204-0003

PATIENT
  Age: 60 Year
  Sex: Male

DRUGS (7)
  1. ZONISAMIDE [Suspect]
     Indication: PARKINSON'S DISEASE
     Dosage: 4 DOSAGE FORMS, 4 IN 1 D, ORAL
     Route: 048
     Dates: start: 20040708, end: 20040814
  2. PLACEBO (ZONISAMIDE) [Suspect]
  3. SINEMET [Concomitant]
  4. SELEGILINE HYDROCHLORIDE(SELEGILINE HYDROCHLORIDE) [Concomitant]
  5. CABERGOLINE [Concomitant]
  6. DOPS (DROXIDOPA) [Concomitant]
  7. DISOPYRAMIDE [Concomitant]

REACTIONS (4)
  - DISEASE PROGRESSION [None]
  - INJURY ASPHYXIATION [None]
  - PARKINSON'S DISEASE [None]
  - PNEUMONIA ASPIRATION [None]
